FAERS Safety Report 6144233-5 (Version None)
Quarter: 2009Q2

REPORT INFORMATION
  Report Type: 
  Country: None (occurrence: None)
  Receive Date: 20090406
  Receipt Date: 20090330
  Transmission Date: 20091009
  Serious: Yes (Other)
  Sender: FDA-Public Use
  Company Number: PHHY2009US12034

PATIENT
  Age: 66 Year
  Sex: Male

DRUGS (7)
  1. ZOLEDRONIC ACID [Suspect]
     Dosage: 4 MG, QMO
     Route: 042
  2. ATORVASTATIN CALCIUM [Concomitant]
  3. LEVOTHYROXINE SODIUM [Concomitant]
  4. VALSARTAN [Concomitant]
  5. ATENOLOL [Concomitant]
  6. ACETYLSALICYLIC ACID [Concomitant]
  7. OMEPRAZOLE [Concomitant]

REACTIONS (8)
  - BONE DISORDER [None]
  - DERMAL SINUS [None]
  - OSTEONECROSIS [None]
  - OSTEOSCLEROSIS [None]
  - PAIN [None]
  - PURULENT DISCHARGE [None]
  - SWELLING FACE [None]
  - TOOTH EXTRACTION [None]
